FAERS Safety Report 8814587 (Version 2)
Quarter: 2012Q4

REPORT INFORMATION
  Report Type: 
  Country: ES (occurrence: ES)
  Receive Date: 20120928
  Receipt Date: 20121020
  Transmission Date: 20130627
  Serious: Yes (Hospitalization)
  Sender: FDA-Public Use
  Company Number: ES-AMGEN-ESPSP2012059972

PATIENT
  Age: 63 Year
  Sex: Female

DRUGS (1)
  1. ROMIPLOSTIM [Suspect]
     Indication: AUTOIMMUNE THROMBOCYTOPENIA
     Dosage: 120 mug, UNK
     Dates: start: 200908, end: 201008

REACTIONS (2)
  - Haemorrhagic diathesis [Unknown]
  - Thrombocytopenia [Unknown]
